FAERS Safety Report 5639876-9 (Version None)
Quarter: 2008Q1

REPORT INFORMATION
  Report Type: 
  Country: None (occurrence: None)
  Receive Date: 20080227
  Receipt Date: 20080218
  Transmission Date: 20080703
  Serious: Yes (Death)
  Sender: FDA-Public Use
  Company Number: US-JNJFOC-20080203915

PATIENT
  Sex: Female
  Weight: 51.71 kg

DRUGS (11)
  1. FENTANYL TRANSDERMAL SYSTEM [Suspect]
     Indication: GOUT
     Route: 062
  2. MORPHINE [Concomitant]
     Indication: PAIN
     Route: 048
  3. METOPROLOL TARTRATE [Concomitant]
     Route: 048
  4. XANAX [Concomitant]
     Route: 048
  5. SYNTHROID [Concomitant]
     Indication: THYROIDECTOMY
     Route: 048
  6. OMEPRAZOLE [Concomitant]
     Route: 048
  7. REQUIP [Concomitant]
     Indication: RESTLESS LEGS SYNDROME
     Route: 048
  8. PAXIL [Concomitant]
     Indication: DEPRESSION
     Route: 048
  9. COMBIVENT [Concomitant]
     Indication: PNEUMONIA
     Route: 048
  10. AMBIEN [Concomitant]
     Indication: SLEEP DISORDER THERAPY
     Route: 048
  11. MIACALCIN [Concomitant]
     Indication: BLOOD CALCIUM
     Route: 055

REACTIONS (1)
  - UNEVALUABLE EVENT [None]
